FAERS Safety Report 8019794-1 (Version None)
Quarter: 2012Q1

REPORT INFORMATION
  Report Type: 
  Country: None (occurrence: None)
  Receive Date: 20120103
  Receipt Date: 20111222
  Transmission Date: 20120608
  Serious: Yes (Hospitalization, Other)
  Sender: FDA-Public Use
  Company Number: US-BAYER-2011-124108

PATIENT
  Age: 87 Year
  Sex: Female
  Weight: 53.07 kg

DRUGS (13)
  1. NORVASC [Concomitant]
     Route: 048
  2. RIVAROXABAN [Suspect]
     Indication: PRODUCT USED FOR UNKNOWN INDICATION
     Dosage: DOSAGE FORM: TABLET
     Route: 048
     Dates: start: 20110925, end: 20110928
  3. ARICEPT [Concomitant]
     Route: 048
  4. LOPRESSOR [Concomitant]
     Route: 048
  5. ACETYLSALICYLIC ACID SRT [Suspect]
     Route: 048
  6. LISINOPRIL [Concomitant]
     Route: 048
  7. METFORMIN HCL [Concomitant]
     Route: 048
  8. ZESTRIL [Concomitant]
     Route: 048
  9. DETROL LA [Concomitant]
     Route: 048
  10. GLYBURIDE [Concomitant]
     Route: 048
  11. VITAMIN B-12 [Concomitant]
     Route: 048
  12. CLONIDINE [Concomitant]
     Route: 048
  13. VITAMIN TAB [Concomitant]
     Route: 047

REACTIONS (1)
  - HAEMORRHAGIC ANAEMIA [None]
